FAERS Safety Report 23792906 (Version 1)
Quarter: 2024Q2

REPORT INFORMATION
  Report Type: Spontaneous
  Country: GB (occurrence: GB)
  Receive Date: 20240429
  Receipt Date: 20240429
  Transmission Date: 20240716
  Serious: Yes (Other)
  Sender: FDA-Public Use
  Company Number: GB-MHRA-TPP34302212C10010522YC1706032044135

PATIENT
  Age: 28 Year
  Sex: Female
  Weight: 60 kg

DRUGS (1)
  1. OLANZAPINE [Suspect]
     Active Substance: OLANZAPINE
     Indication: Brief psychotic disorder, with postpartum onset
     Dosage: 5 MILLIGRAM
     Route: 065

REACTIONS (4)
  - Joint stiffness [Recovered/Resolved]
  - Extrapyramidal disorder [Unknown]
  - Lethargy [Unknown]
  - Somnolence [Unknown]
